FAERS Safety Report 4889639-7 (Version None)
Quarter: 2006Q1

REPORT INFORMATION
  Report Type: 
  Country: None (occurrence: None)
  Receive Date: 20060124
  Receipt Date: 20060117
  Transmission Date: 20060701
  Serious: Yes (Other)
  Sender: FDA-Public Use
  Company Number: GB-GLAXOSMITHKLINE-B0407066A

PATIENT
  Age: 83 Year
  Sex: Male
  Weight: 94 kg

DRUGS (6)
  1. AVANDAMET [Suspect]
     Indication: DIABETES MELLITUS NON-INSULIN-DEPENDENT
     Route: 048
     Dates: start: 20050902
  2. EPROSARTAN [Concomitant]
     Indication: HYPERTENSION
     Dosage: 300MG PER DAY
     Route: 065
     Dates: start: 20011108
  3. OMEPRAZOLE [Concomitant]
     Dosage: 10MG PER DAY
     Route: 065
     Dates: start: 20010101
  4. CELEBREX [Concomitant]
     Dosage: 100MG PER DAY
     Route: 065
     Dates: start: 20050628
  5. GALFER [Concomitant]
     Dosage: 305MG PER DAY
     Route: 065
  6. SIMVASTATIN [Concomitant]
     Indication: HYPERTENSION
     Dosage: 10MG PER DAY
     Route: 065
     Dates: start: 20020101

REACTIONS (1)
  - IRON DEFICIENCY ANAEMIA [None]
